FAERS Safety Report 17277004 (Version 1)
Quarter: 2020Q1

REPORT INFORMATION
  Report Type: Spontaneous
  Country: US (occurrence: US)
  Receive Date: 20200116
  Receipt Date: 20200116
  Transmission Date: 20200409
  Serious: Yes (Other)
  Sender: FDA-Public Use
  Company Number: NVSC2020US006603

PATIENT
  Age: 58 Year
  Sex: Male

DRUGS (1)
  1. VORICONAZOLE. [Suspect]
     Active Substance: VORICONAZOLE
     Indication: ASPERGILLUS INFECTION
     Dosage: UNK
     Route: 048

REACTIONS (5)
  - Hypoglycaemia [Recovered/Resolved]
  - Dizziness [Unknown]
  - Hypotension [Unknown]
  - Atrial fibrillation [Unknown]
  - Hyperhidrosis [Unknown]
